FAERS Safety Report 20840687 (Version 1)
Quarter: 2022Q2

REPORT INFORMATION
  Report Type: Spontaneous
  Country: CA (occurrence: None)
  Receive Date: 20220517
  Receipt Date: 20220517
  Transmission Date: 20220721
  Serious: No
  Sender: FDA-Public Use
  Company Number: CA-ROCHE-3094765

PATIENT
  Sex: Female

DRUGS (1)
  1. OCREVUS [Suspect]
     Active Substance: OCRELIZUMAB
     Indication: Multiple sclerosis
     Dosage: 300MG IV ON DAY 0 AND DAY 14 (WHICH OCCURRED ON FEB 10TH AND 25TH, 2022). AFTER THIS THE MEDICATION
     Route: 042
     Dates: start: 20220210

REACTIONS (1)
  - COVID-19 [Unknown]
